FAERS Safety Report 24111441 (Version 1)
Quarter: 2024Q3

REPORT INFORMATION
  Report Type: Spontaneous
  Country: US (occurrence: US)
  Receive Date: 20240718
  Receipt Date: 20240718
  Transmission Date: 20241017
  Serious: No
  Sender: AMGEN
  Company Number: US-AMGEN-USASP2024140559

PATIENT
  Sex: Male

DRUGS (4)
  1. ACTIMMUNE [Suspect]
     Active Substance: INTERFERON GAMMA-1B
     Indication: Neutrophil function disorder
     Dosage: 60 MICROGRAM, 3 TIMES/WK (INJECT UNDER THE SKIN ON MONDAY, WEDNESDAY AND FRIDAY)
     Route: 058
  2. POSACONAZOLE [Concomitant]
     Active Substance: POSACONAZOLE
     Dosage: UNK, (100 MG)
  3. CEFDINIR [Concomitant]
     Active Substance: CEFDINIR
     Dosage: UNK, (300 MG)
  4. MUPIROCIN [Concomitant]
     Active Substance: MUPIROCIN
     Dosage: UNK, (100 %)

REACTIONS (3)
  - Animal bite [Unknown]
  - Off label use [Unknown]
  - Product dose omission issue [Unknown]
